FAERS Safety Report 13941629 (Version 1)
Quarter: 2017Q3

REPORT INFORMATION
  Report Type: Spontaneous
  Country: US (occurrence: None)
  Receive Date: 20170906
  Receipt Date: 20170906
  Transmission Date: 20171127
  Serious: No
  Sender: FDA-Public Use
  Company Number: None

PATIENT
  Age: 28 Year
  Sex: Female

DRUGS (3)
  1. SYMBICORT [Concomitant]
     Active Substance: BUDESONIDE\FORMOTEROL FUMARATE DIHYDRATE
  2. COPAXONE [Suspect]
     Active Substance: GLATIRAMER ACETATE
  3. ALBUTEROL. [Concomitant]
     Active Substance: ALBUTEROL

REACTIONS (4)
  - Injection site reaction [None]
  - Injection site rash [None]
  - Injection site pruritus [None]
  - Rash pruritic [None]

NARRATIVE: CASE EVENT DATE: 20170906
